FAERS Safety Report 26043165 (Version 1)
Quarter: 2025Q4

REPORT INFORMATION
  Report Type: Spontaneous
  Country: EU (occurrence: EU)
  Receive Date: 20251113
  Receipt Date: 20251113
  Transmission Date: 20260118
  Serious: Yes (Hospitalization, Other)
  Sender: PFIZER
  Company Number: None

PATIENT
  Age: 84 Year
  Sex: Male
  Weight: 64 kg

DRUGS (9)
  1. RITUXIMAB [Suspect]
     Active Substance: RITUXIMAB
     Indication: B-cell lymphoma
     Dosage: 1 DF, CYCLIC
     Dates: start: 20211126, end: 20220311
  2. DOXORUBICIN HYDROCHLORIDE [Suspect]
     Active Substance: DOXORUBICIN HYDROCHLORIDE
     Indication: B-cell lymphoma
     Dosage: 1 DF, CYCLIC
     Dates: start: 20211126, end: 20220311
  3. VINCRISTINE SULFATE [Suspect]
     Active Substance: VINCRISTINE SULFATE
     Indication: B-cell lymphoma
     Dosage: 1 DF, CYCLIC
     Dates: start: 20211126, end: 20220311
  4. CYCLOPHOSPHAMIDE [Suspect]
     Active Substance: CYCLOPHOSPHAMIDE
     Indication: B-cell lymphoma
     Dosage: 1 DF, CYCLIC
     Dates: start: 20211126, end: 20220311
  5. PREDNISONE [Suspect]
     Active Substance: PREDNISONE
     Indication: B-cell lymphoma
     Dosage: 1 DF, CYCLIC
     Dates: start: 20211126, end: 20220311
  6. IMBRUVICA [Suspect]
     Active Substance: IBRUTINIB
     Indication: B-cell lymphoma
     Dosage: 560 MG, 1X/DAY
     Route: 048
     Dates: start: 20230515, end: 20241010
  7. IMBRUVICA [Suspect]
     Active Substance: IBRUTINIB
     Dosage: 560 MG, 1X/DAY
     Route: 048
     Dates: start: 20230515, end: 20241010
  8. IMBRUVICA [Suspect]
     Active Substance: IBRUTINIB
     Dosage: 420 MG, 1X/DAY
     Route: 048
     Dates: start: 20241010, end: 20250923
  9. IMBRUVICA [Suspect]
     Active Substance: IBRUTINIB
     Dosage: 420 MG, 1X/DAY
     Route: 048
     Dates: start: 20241010, end: 20250923

REACTIONS (2)
  - Dilated cardiomyopathy [Not Recovered/Not Resolved]
  - Cardiac failure [Recovered/Resolved]

NARRATIVE: CASE EVENT DATE: 20250708
